FAERS Safety Report 9046495 (Version 1)
Quarter: 2013Q1

REPORT INFORMATION
  Report Type: Spontaneous
  Country: US (occurrence: None)
  Receive Date: 20130128
  Receipt Date: 20130128
  Transmission Date: 20140127
  Serious: Yes (Life-Threatening, Hospitalization)
  Sender: FDA-Public Use
  Company Number: None

PATIENT
  Age: 89 Year
  Sex: Female
  Weight: 81.65 kg

DRUGS (1)
  1. TAMIFLU [Suspect]

REACTIONS (6)
  - Confusional state [None]
  - Lethargy [None]
  - International normalised ratio increased [None]
  - Haematuria [None]
  - Hepatic enzyme increased [None]
  - Lipase increased [None]
